FAERS Safety Report 6796030-5 (Version None)
Quarter: 2010Q2

REPORT INFORMATION
  Report Type: 
  Country: None (occurrence: None)
  Receive Date: 20100625
  Receipt Date: 20100614
  Transmission Date: 20101027
  Serious: Yes (Hospitalization)
  Sender: FDA-Public Use
  Company Number: CA-JNJFOC-20100604893

PATIENT
  Sex: Female
  Weight: 72 kg

DRUGS (25)
  1. REMICADE [Suspect]
     Indication: CROHN'S DISEASE
     Route: 042
  2. MS CONTIN [Concomitant]
  3. SUPEUDOL [Concomitant]
     Indication: PAIN
  4. DIMENHYDRINATE [Concomitant]
     Indication: PREMEDICATION
     Route: 042
  5. SOLU-CORTEF [Concomitant]
     Indication: PREMEDICATION
     Route: 042
  6. APO-PROPRANOLOL [Concomitant]
  7. RIVA-D [Concomitant]
  8. CALCIUM CARBONATE [Concomitant]
  9. PURINETHOL [Concomitant]
  10. NITRAZEPAM [Concomitant]
     Indication: INSOMNIA
  11. NOVO-ALPRAZOL [Concomitant]
     Indication: ANXIETY
  12. NOVOQUININE [Concomitant]
     Indication: MUSCLE SPASMS
  13. COZAAR [Concomitant]
     Indication: BLOOD PRESSURE
  14. PLENDIL [Concomitant]
  15. APO-FUROSEMIDE [Concomitant]
     Indication: BLOOD PRESSURE
  16. LYRICA [Concomitant]
  17. RAN-PANTOPRAZOLE [Concomitant]
  18. RELPAX [Concomitant]
     Indication: MIGRAINE
  19. GRAVOL TAB [Concomitant]
     Indication: NAUSEA
  20. VITAMIN B-12 [Concomitant]
     Route: 050
  21. RATIO-EMTEC-30 [Concomitant]
     Indication: PAIN
     Dosage: 300+30 MG
  22. ACETAMINOPHEN [Concomitant]
     Indication: PAIN
  23. ARTHRITIC ACETAMINOPHEN [Concomitant]
     Indication: PAIN
  24. DICLOFENAC SODIUM [Concomitant]
  25. RIVA-FLUCONAZOLE [Concomitant]
     Indication: VAGINAL INFECTION

REACTIONS (4)
  - CYSTITIS [None]
  - OVERDOSE [None]
  - PNEUMONIA [None]
  - PYREXIA [None]
